FAERS Safety Report 25905755 (Version 1)
Quarter: 2025Q4

REPORT INFORMATION
  Report Type: Spontaneous
  Country: US (occurrence: US)
  Receive Date: 20251010
  Receipt Date: 20251010
  Transmission Date: 20260118
  Serious: Yes (Other)
  Sender: MYLAN
  Company Number: US-MYLANLABS-2025M1085404

PATIENT
  Age: 66 Year
  Sex: Female

DRUGS (20)
  1. DOXORUBICIN [Suspect]
     Active Substance: DOXORUBICIN
     Indication: Cutaneous T-cell lymphoma stage IV
     Dosage: UNK
  2. DOXORUBICIN [Suspect]
     Active Substance: DOXORUBICIN
     Indication: Cutaneous T-cell lymphoma
     Dosage: UNK
     Route: 065
  3. DOXORUBICIN [Suspect]
     Active Substance: DOXORUBICIN
     Dosage: UNK
     Route: 065
  4. DOXORUBICIN [Suspect]
     Active Substance: DOXORUBICIN
     Dosage: UNK
  5. GEMCITABINE [Suspect]
     Active Substance: GEMCITABINE
     Indication: Cutaneous T-cell lymphoma stage IV
     Dosage: OVER THE COURSE OF 7 CYCLES
  6. GEMCITABINE [Suspect]
     Active Substance: GEMCITABINE
     Indication: Cutaneous T-cell lymphoma
     Dosage: OVER THE COURSE OF 7 CYCLES
  7. GEMCITABINE [Suspect]
     Active Substance: GEMCITABINE
     Dosage: OVER THE COURSE OF 7 CYCLES
     Route: 065
  8. GEMCITABINE [Suspect]
     Active Substance: GEMCITABINE
     Dosage: OVER THE COURSE OF 7 CYCLES
     Route: 065
  9. GEMCITABINE [Suspect]
     Active Substance: GEMCITABINE
     Dosage: UNK
  10. GEMCITABINE [Suspect]
     Active Substance: GEMCITABINE
     Dosage: UNK
  11. GEMCITABINE [Suspect]
     Active Substance: GEMCITABINE
     Dosage: UNK
     Route: 065
  12. GEMCITABINE [Suspect]
     Active Substance: GEMCITABINE
     Dosage: UNK
     Route: 065
  13. PRALATREXATE [Suspect]
     Active Substance: PRALATREXATE
     Indication: Cutaneous T-cell lymphoma stage IV
     Dosage: UNK
  14. PRALATREXATE [Suspect]
     Active Substance: PRALATREXATE
     Indication: Cutaneous T-cell lymphoma
     Dosage: UNK
     Route: 065
  15. PRALATREXATE [Suspect]
     Active Substance: PRALATREXATE
     Dosage: UNK
     Route: 065
  16. PRALATREXATE [Suspect]
     Active Substance: PRALATREXATE
     Dosage: UNK
  17. BRENTUXIMAB [Concomitant]
     Active Substance: BRENTUXIMAB
     Indication: Cutaneous T-cell lymphoma stage IV
     Dosage: UNK, REQUIRED SEVERAL DOSE REDUCTIONS AND PROLONGED INFUSIONS OVER THE COURSE OF 7 CYCLES
  18. BRENTUXIMAB [Concomitant]
     Active Substance: BRENTUXIMAB
     Indication: Cutaneous T-cell lymphoma
     Dosage: UNK, REQUIRED SEVERAL DOSE REDUCTIONS AND PROLONGED INFUSIONS OVER THE COURSE OF 7 CYCLES
     Route: 065
  19. BRENTUXIMAB [Concomitant]
     Active Substance: BRENTUXIMAB
     Dosage: UNK, REQUIRED SEVERAL DOSE REDUCTIONS AND PROLONGED INFUSIONS OVER THE COURSE OF 7 CYCLES
     Route: 065
  20. BRENTUXIMAB [Concomitant]
     Active Substance: BRENTUXIMAB
     Dosage: UNK, REQUIRED SEVERAL DOSE REDUCTIONS AND PROLONGED INFUSIONS OVER THE COURSE OF 7 CYCLES

REACTIONS (7)
  - Infusion related reaction [Unknown]
  - Diarrhoea [Unknown]
  - Drug intolerance [Unknown]
  - Dehydration [Unknown]
  - Weight decreased [Unknown]
  - Fatigue [Unknown]
  - Pyrexia [Unknown]

NARRATIVE: CASE EVENT DATE: 20221001
